FAERS Safety Report 6891900-1 (Version None)
Quarter: 2010Q3

REPORT INFORMATION
  Report Type: 
  Country: None (occurrence: None)
  Receive Date: 20100731
  Receipt Date: 20071124
  Transmission Date: 20110219
  Serious: No
  Sender: FDA-Public Use
  Company Number: US-PFIZER INC-2007079046

PATIENT
  Sex: Female
  Weight: 48.6 kg

DRUGS (3)
  1. NORVASC [Suspect]
     Indication: HYPERTENSION
     Dates: start: 19970101, end: 20070801
  2. AMLODIPINE [Suspect]
     Indication: HYPERTENSION
     Dates: start: 20070801
  3. LUVOX [Concomitant]

REACTIONS (1)
  - URTICARIA [None]
